FAERS Safety Report 17494320 (Version 1)
Quarter: 2020Q1

REPORT INFORMATION
  Report Type: Spontaneous
  Country: US (occurrence: US)
  Receive Date: 20200303
  Receipt Date: 20200303
  Transmission Date: 20200409
  Serious: No
  Sender: FDA-Public Use
  Company Number: US-AMNEAL PHARMACEUTICALS-2019-IPXL-01312

PATIENT
  Sex: Female

DRUGS (6)
  1. RYTARY [Suspect]
     Active Substance: CARBIDOPA\LEVODOPA
     Indication: PRODUCT USED FOR UNKNOWN INDICATION
     Dosage: 2 DOSAGE FORM, TID
     Route: 048
     Dates: start: 2018
  2. ROSUVASTATIN. [Interacting]
     Active Substance: ROSUVASTATIN
     Indication: BLOOD CHOLESTEROL ABNORMAL
     Dosage: UNK
     Route: 065
  3. BUPROPION HYDROCHLORIDE. [Interacting]
     Active Substance: BUPROPION HYDROCHLORIDE
     Indication: PRODUCT USED FOR UNKNOWN INDICATION
     Dosage: 300 MILLIGRAM, UNK FREQUENCY
     Route: 065
  4. CARVEDILOL. [Interacting]
     Active Substance: CARVEDILOL
     Indication: BLOOD PRESSURE ABNORMAL
     Dosage: 25 MILLIGRAM, UNK FREQUENCY
     Route: 065
  5. ESTRADIOL. [Interacting]
     Active Substance: ESTRADIOL
     Indication: HORMONE THERAPY
     Dosage: 2 MILLIGRAM, UNK FREQUENCY
     Route: 065
  6. LEVOTHYROXINE SODIUM. [Interacting]
     Active Substance: LEVOTHYROXINE SODIUM
     Indication: THYROID DISORDER
     Dosage: 50 MICROGRAM, MORNING
     Route: 065

REACTIONS (5)
  - Vomiting [Recovered/Resolved]
  - Drug interaction [Recovered/Resolved]
  - Weight decreased [Recovered/Resolved]
  - Nausea [Recovered/Resolved]
  - Constipation [Unknown]
